FAERS Safety Report 8869279 (Version 1)
Quarter: 2012Q4

REPORT INFORMATION
  Report Type: 
  Country: US (occurrence: US)
  Receive Date: 20121023
  Receipt Date: 20121023
  Transmission Date: 20130627
  Serious: No
  Sender: FDA-Public Use
  Company Number: US-AMGEN-USASP2012052690

PATIENT
  Age: 56 Year
  Sex: Female
  Weight: 70.3 kg

DRUGS (7)
  1. ENBREL [Suspect]
     Indication: PRODUCT USED FOR UNKNOWN INDICATION
     Dosage: 50 mg, qwk
     Route: 058
  2. METHOTREXATE [Concomitant]
     Dosage: 2.5 mg, UNK
  3. BUPROPION [Concomitant]
     Dosage: 75 mg, UNK
  4. IBUPROFEN [Concomitant]
     Dosage: 200 mg, UNK
  5. NEXIUM                             /01479302/ [Concomitant]
     Dosage: 20 mg, UNK
  6. FLEXERIL                           /00428402/ [Concomitant]
     Dosage: 05 mg, UNK
  7. FOLIC ACID [Concomitant]
     Dosage: UNK

REACTIONS (3)
  - Upper respiratory tract infection [Unknown]
  - Ear pain [Unknown]
  - Respiratory tract congestion [Unknown]
